FAERS Safety Report 11190998 (Version 1)
Quarter: 2015Q2

REPORT INFORMATION
  Report Type: Spontaneous
  Country: None (occurrence: DK)
  Receive Date: 20150615
  Receipt Date: 20150615
  Transmission Date: 20150821
  Serious: Yes (Hospitalization)
  Sender: FDA-Public Use
  Company Number: DK-MEDAC PHARMA, INC.-1039976

PATIENT
  Age: 17 Year
  Sex: Male

DRUGS (8)
  1. METHOTREXATE [Suspect]
     Active Substance: METHOTREXATE
     Indication: JUVENILE IDIOPATHIC ARTHRITIS
     Route: 058
     Dates: start: 20121109
  2. NAPROXEN. [Suspect]
     Active Substance: NAPROXEN
     Route: 048
     Dates: start: 2012
  3. KENALOG [Suspect]
     Active Substance: TRIAMCINOLONE ACETONIDE
     Route: 014
     Dates: start: 20120925
  4. PREDNISOLONE. [Suspect]
     Active Substance: PREDNISOLONE
     Route: 048
     Dates: start: 20120925
  5. GRANISETRON HYDROCHLORIDE. [Concomitant]
     Active Substance: GRANISETRON HYDROCHLORIDE
     Dates: start: 20121109
  6. ENBREL [Suspect]
     Active Substance: ETANERCEPT
     Route: 058
     Dates: start: 20121207, end: 20130214
  7. HUMIRA [Suspect]
     Active Substance: ADALIMUMAB
     Route: 058
     Dates: start: 20130214
  8. FOLIC ACID. [Concomitant]
     Active Substance: FOLIC ACID
     Dates: start: 20121109

REACTIONS (8)
  - Bone atrophy [Unknown]
  - Gait disturbance [Unknown]
  - Cartilage atrophy [Unknown]
  - Arthritis [Unknown]
  - Knee operation [Unknown]
  - Oedema peripheral [Unknown]
  - Synovitis [Unknown]
  - Bone disorder [Unknown]

NARRATIVE: CASE EVENT DATE: 2012
